FAERS Safety Report 25925117 (Version 1)
Quarter: 2025Q4

REPORT INFORMATION
  Report Type: Spontaneous
  Country: EU (occurrence: EU)
  Receive Date: 20251015
  Receipt Date: 20251015
  Transmission Date: 20260117
  Serious: Yes (Life-Threatening, Other)
  Sender: HIKMA
  Company Number: None

PATIENT
  Age: 55 Year
  Sex: Male

DRUGS (7)
  1. CYTARABINE [Suspect]
     Active Substance: CYTARABINE
     Indication: Acute lymphocytic leukaemia
     Dosage: 40 MILLIGRAM, SINGLE
     Route: 037
     Dates: start: 20250715, end: 20250715
  2. METHOTREXATE [Suspect]
     Active Substance: METHOTREXATE
     Indication: Acute lymphocytic leukaemia
     Dosage: 15 MILLIGRAM, SINGLE
     Route: 037
     Dates: start: 20250715, end: 20250715
  3. METHYLPREDNISOLONE [Suspect]
     Active Substance: METHYLPREDNISOLONE
     Indication: Acute lymphocytic leukaemia
     Dosage: 40 MILLIGRAM, SINGLE
     Route: 037
     Dates: start: 20250715, end: 20250715
  4. PREDNISONE [Suspect]
     Active Substance: PREDNISONE
     Indication: Acute lymphocytic leukaemia
     Dosage: 120 MILLIGRAM, QD
     Route: 048
     Dates: start: 20250708, end: 20250714
  5. RITUXIMAB [Suspect]
     Active Substance: RITUXIMAB
     Indication: Acute lymphocytic leukaemia
     Dosage: 1600 MILLIGRAM, SINGLE
     Route: 042
     Dates: start: 20250708, end: 20250715
  6. ASPARAGINASE [Suspect]
     Active Substance: ASPARAGINASE
     Indication: Acute lymphocytic leukaemia
     Dosage: 24600 INTERNATIONAL UNIT, SINGLE
     Route: 042
     Dates: start: 20250715, end: 20250717
  7. VINCRISTINE SULFATE [Suspect]
     Active Substance: VINCRISTINE SULFATE
     Indication: Acute lymphocytic leukaemia
     Dosage: 4 MILLIGRAM, SINGLE
     Route: 042
     Dates: start: 20250702, end: 20250715

REACTIONS (1)
  - Encephalopathy [Recovered/Resolved]

NARRATIVE: CASE EVENT DATE: 20250717
